FAERS Safety Report 14325789 (Version 8)
Quarter: 2018Q2

REPORT INFORMATION
  Report Type: Report from Study
  Country: US (occurrence: US)
  Receive Date: 20171226
  Receipt Date: 20180518
  Transmission Date: 20180711
  Serious: Yes (Hospitalization)
  Sender: FDA-Public Use
  Company Number: US-ACTELION-A-NJ2017-162441

PATIENT
  Age: 59 Year
  Sex: Male
  Weight: 86.17 kg

DRUGS (9)
  1. VELETRI [Suspect]
     Active Substance: EPOPROSTENOL
     Dosage: 4 NG/KG, PER MIN
     Route: 042
  2. REVATIO [Concomitant]
     Active Substance: SILDENAFIL CITRATE
     Dosage: 20 MG, TID
     Dates: start: 2015
  3. LETAIRIS [Concomitant]
     Active Substance: AMBRISENTAN
     Dosage: 10 MG, QD
     Dates: start: 2016, end: 201710
  4. VELETRI [Suspect]
     Active Substance: EPOPROSTENOL
     Indication: PULMONARY ARTERIAL HYPERTENSION
     Dosage: 16 NG/KG, PER MIN
     Route: 042
     Dates: start: 201711, end: 20171215
  5. LETAIRIS [Concomitant]
     Active Substance: AMBRISENTAN
     Dosage: 10 MG, QD
     Dates: start: 2015
  6. REMODULIN [Concomitant]
     Active Substance: TREPROSTINIL
     Route: 058
  7. VELETRI [Suspect]
     Active Substance: EPOPROSTENOL
     Dosage: 11 NG/KG, PER MIN
     Route: 042
  8. VELETRI [Suspect]
     Active Substance: EPOPROSTENOL
     Dosage: 12 NG/KG, PER MIN
     Route: 042
  9. VELETRI [Suspect]
     Active Substance: EPOPROSTENOL
     Dosage: 7 NG/KG, PER MIN
     Route: 042

REACTIONS (30)
  - Dyspnoea exertional [Unknown]
  - Influenza like illness [Unknown]
  - Dysgeusia [Unknown]
  - Feeling abnormal [Unknown]
  - Central venous catheterisation [Unknown]
  - Catheter site pruritus [Unknown]
  - Catheter site erythema [Unknown]
  - Therapy non-responder [Unknown]
  - Drug intolerance [Unknown]
  - Stent placement [Unknown]
  - Dyspnoea [Unknown]
  - Device related infection [Unknown]
  - Rash [Unknown]
  - Diarrhoea [Unknown]
  - Nausea [Unknown]
  - Device occlusion [Recovered/Resolved]
  - Pain in jaw [Unknown]
  - Vomiting [Unknown]
  - Blood culture positive [Unknown]
  - Abdominal pain upper [Unknown]
  - Catheter management [Recovered/Resolved]
  - Chills [Unknown]
  - Insomnia [Unknown]
  - Dizziness [Unknown]
  - Presyncope [Unknown]
  - Sepsis [Unknown]
  - Headache [Unknown]
  - Pain [Unknown]
  - Infection [Unknown]
  - Catheter site pain [Unknown]
